FAERS Safety Report 11550026 (Version 1)
Quarter: 2015Q3

REPORT INFORMATION
  Report Type: Report from Study
  Country: US (occurrence: US)
  Receive Date: 20150924
  Receipt Date: 20150924
  Transmission Date: 20151125
  Serious: Yes (Other)
  Sender: FDA-Public Use
  Company Number: US-009507513-1509USA009111

PATIENT
  Age: 47 Year
  Sex: Male
  Weight: 91.16 kg

DRUGS (14)
  1. OMEGA-3 ACIDS [Concomitant]
     Active Substance: OMEGA-3 FATTY ACIDS
     Indication: CARDIAC DISORDER
     Dosage: 2000 MG QD
     Route: 048
     Dates: start: 20120223
  2. ALBUTEROL. [Concomitant]
     Active Substance: ALBUTEROL
     Dosage: UNK
     Dates: start: 20150906
  3. ASPIRIN. [Concomitant]
     Active Substance: ASPIRIN
     Indication: CARDIAC DISORDER
     Dosage: 325 MG, QD
     Route: 048
     Dates: start: 20090731
  4. CHERATUSSIN AC [Concomitant]
     Active Substance: CODEINE PHOSPHATE\GUAIFENESIN
     Indication: COUGH
  5. CELESTONE SOLUSPAN [Suspect]
     Active Substance: BETAMETHASONE ACETATE\BETAMETHASONE SODIUM PHOSPHATE
     Indication: ACUTE SINUSITIS
     Dosage: UNK
     Route: 030
     Dates: start: 20150906
  6. CELESTONE SOLUSPAN [Suspect]
     Active Substance: BETAMETHASONE ACETATE\BETAMETHASONE SODIUM PHOSPHATE
     Indication: COUGH
  7. CARVEDILOL. [Concomitant]
     Active Substance: CARVEDILOL
     Indication: CARDIAC DISORDER
     Dosage: 12.5 MG, QD
     Route: 048
     Dates: start: 20140207
  8. CEFDINIR. [Concomitant]
     Active Substance: CEFDINIR
     Indication: ACUTE SINUSITIS
     Dosage: 300 MG, Q12H
  9. BOCOCIZUMAB [Concomitant]
     Active Substance: BOCOCIZUMAB
     Indication: CARDIOVASCULAR EVENT PROPHYLAXIS
     Dosage: UNK
     Route: 058
     Dates: start: 20150522, end: 20150820
  10. ZOCOR [Concomitant]
     Active Substance: SIMVASTATIN
     Indication: LIPIDS
     Dosage: 40 MG, QD
     Route: 048
     Dates: start: 20100824
  11. PRINIVIL [Concomitant]
     Active Substance: LISINOPRIL
     Indication: CARDIAC DISORDER
     Dosage: 20 MG, QD
     Route: 048
     Dates: start: 20090731
  12. ROCEPHIN [Concomitant]
     Active Substance: CEFTRIAXONE SODIUM
     Dosage: UNK
     Route: 030
     Dates: start: 20150906
  13. CEFDINIR. [Concomitant]
     Active Substance: CEFDINIR
     Indication: COUGH
  14. CHERATUSSIN AC [Concomitant]
     Active Substance: CODEINE PHOSPHATE\GUAIFENESIN
     Indication: ACUTE SINUSITIS
     Dosage: 5 ML, Q4-6HRS,  PRN

REACTIONS (2)
  - Pneumonia [Not Recovered/Not Resolved]
  - Drug ineffective [Unknown]

NARRATIVE: CASE EVENT DATE: 20150909
